FAERS Safety Report 5977890-4 (Version None)
Quarter: 2008Q4

REPORT INFORMATION
  Report Type: 
  Country: None (occurrence: None)
  Receive Date: 20081203
  Receipt Date: 20081125
  Transmission Date: 20090506
  Serious: Yes (Death, Hospitalization)
  Sender: FDA-Public Use
  Company Number: US-GENENTECH-272179

PATIENT
  Sex: Male
  Weight: 78.912 kg

DRUGS (3)
  1. BEVACIZUMAB [Suspect]
     Indication: NON-SMALL CELL LUNG CANCER
     Dosage: 10 MG/KG, UNK
     Dates: start: 20080924, end: 20081121
  2. PEMETREXED [Suspect]
     Indication: NON-SMALL CELL LUNG CANCER
     Dosage: 500 MG/M2, UNK
     Dates: start: 20080924, end: 20081121
  3. GEMCITABINE HCL [Suspect]
     Indication: NON-SMALL CELL LUNG CANCER
     Dosage: 1500 MG/M2, UNK
     Dates: start: 20080924, end: 20081121

REACTIONS (5)
  - ACIDOSIS [None]
  - ATRIAL FIBRILLATION [None]
  - DIARRHOEA [None]
  - SEPSIS [None]
  - VOMITING [None]
